FAERS Safety Report 4751374-3 (Version None)
Quarter: 2005Q3

REPORT INFORMATION
  Report Type: 
  Country: None (occurrence: None)
  Receive Date: 20050823
  Receipt Date: 20050823
  Transmission Date: 20060218
  Serious: Yes (Hospitalization)
  Sender: FDA-Public Use
  Company Number: None

PATIENT
  Age: 61 Year
  Sex: Male
  Weight: 88.4514 kg

DRUGS (2)
  1. CIPRO [Suspect]
     Indication: BACTERIAL FOOD POISONING
     Dosage: 500MG    TWICE DAILY   PO
     Route: 048
     Dates: start: 20050610, end: 20050620
  2. CIPRO [Suspect]
     Indication: BACTERIAL FOOD POISONING
     Dosage: 500MG    TWICE DAILY   PO
     Route: 048
     Dates: start: 20050710, end: 20050720

REACTIONS (2)
  - ATRIAL FLUTTER [None]
  - HEART RATE IRREGULAR [None]
